FAERS Safety Report 17162741 (Version 2)
Quarter: 2020Q2

REPORT INFORMATION
  Report Type: Report from Study
  Country: ES (occurrence: ES)
  Receive Date: 20191217
  Receipt Date: 20200618
  Transmission Date: 20200713
  Serious: Yes (Other)
  Sender: FDA-Public Use
  Company Number: ES-GILEAD-2019-0442150

PATIENT
  Age: 50 Year
  Sex: Female

DRUGS (3)
  1. 3TC [Concomitant]
     Active Substance: LAMIVUDINE
  2. RALTEGRAVIR. [Concomitant]
     Active Substance: RALTEGRAVIR
  3. TENOFOVIR DISOPROXIL FUMARATE. [Suspect]
     Active Substance: TENOFOVIR DISOPROXIL FUMARATE
     Indication: HIV INFECTION
     Dosage: UNK
     Route: 065

REACTIONS (1)
  - Ischaemic cardiomyopathy [Unknown]
